FAERS Safety Report 4625771-0 (Version None)
Quarter: 2005Q1

REPORT INFORMATION
  Report Type: 
  Country: None (occurrence: None)
  Receive Date: 20050330
  Receipt Date: 20050311
  Transmission Date: 20050727
  Serious: Yes (Death)
  Sender: FDA-Public Use
  Company Number: JP_050306092

PATIENT
  Age: 73 Year
  Sex: Female
  Weight: 42 kg

DRUGS (4)
  1. EVISTA [Suspect]
     Indication: OSTEOPOROSIS
     Dosage: 60 MG/1 DAY
     Dates: start: 20050307, end: 20050308
  2. PLATIBIT (ALFACALCIDOL) [Concomitant]
  3. LIPOVAS (SIMVASTATIN RATIOPHARM) [Concomitant]
  4. GANATON (ITOPRIDE HYDROCHLORIDE) [Concomitant]

REACTIONS (1)
  - LOSS OF CONSCIOUSNESS [None]
